FAERS Safety Report 12712523 (Version 1)
Quarter: 2016Q3

REPORT INFORMATION
  Report Type: Report from Study
  Country: JP (occurrence: JP)
  Receive Date: 20160902
  Receipt Date: 20160902
  Transmission Date: 20161109
  Serious: Yes (Hospitalization)
  Sender: FDA-Public Use
  Company Number: ALCN2011JP004790

PATIENT
  Age: 68 Year
  Sex: Male

DRUGS (1)
  1. DIFLUPREDNATE [Suspect]
     Active Substance: DIFLUPREDNATE
     Indication: MACULAR OEDEMA
     Route: 047
     Dates: start: 20101221, end: 20110315

REACTIONS (1)
  - Cataract subcapsular [Recovering/Resolving]

NARRATIVE: CASE EVENT DATE: 20111103
